FAERS Safety Report 18193569 (Version 1)
Quarter: 2020Q3

REPORT INFORMATION
  Report Type: Spontaneous
  Country: US (occurrence: US)
  Receive Date: 20200825
  Receipt Date: 20200825
  Transmission Date: 20201103
  Serious: No
  Sender: FDA-Public Use
  Company Number: US-009507513-2008USA011460

PATIENT
  Sex: Female

DRUGS (1)
  1. NEXPLANON [Suspect]
     Active Substance: ETONOGESTREL
     Dosage: 1 ROD, DOSE/FREQUENCY: ONCE, IMPLANTED
     Route: 059

REACTIONS (3)
  - Device issue [Not Recovered/Not Resolved]
  - No adverse event [Unknown]
  - Device deployment issue [Not Recovered/Not Resolved]
